FAERS Safety Report 12924529 (Version 2)
Quarter: 2016Q4

REPORT INFORMATION
  Report Type: Report from Study
  Country: US (occurrence: US)
  Receive Date: 20161109
  Receipt Date: 20161123
  Transmission Date: 20170207
  Serious: Yes (Hospitalization, Other)
  Sender: FDA-Public Use
  Company Number: US-BAYER-2015-472398

PATIENT
  Age: 74 Year
  Sex: Female
  Weight: 77.55 kg

DRUGS (7)
  1. ADEMPAS [Suspect]
     Active Substance: RIOCIGUAT
     Indication: PULMONARY ARTERIAL HYPERTENSION
     Dosage: 1 MG, TID
     Route: 048
  2. APIXABAN [Concomitant]
     Active Substance: APIXABAN
     Dosage: UNK
  3. ADEMPAS [Suspect]
     Active Substance: RIOCIGUAT
     Indication: PULMONARY ARTERIAL HYPERTENSION
     Dosage: 1 MG, TID
     Route: 048
  4. ADEMPAS [Suspect]
     Active Substance: RIOCIGUAT
     Indication: PULMONARY ARTERIAL HYPERTENSION
     Dosage: 1 MG, TID
     Route: 048
  5. ADEMPAS [Suspect]
     Active Substance: RIOCIGUAT
     Indication: PULMONARY ARTERIAL HYPERTENSION
     Dosage: UNK
     Dates: start: 20151029
  6. ADEMPAS [Suspect]
     Active Substance: RIOCIGUAT
     Indication: PULMONARY ARTERIAL HYPERTENSION
     Dosage: 1 MG, TID
     Route: 048
  7. ADEMPAS [Suspect]
     Active Substance: RIOCIGUAT
     Indication: PULMONARY ARTERIAL HYPERTENSION
     Dosage: 1 MG, TID
     Route: 048

REACTIONS (16)
  - Arthralgia [Not Recovered/Not Resolved]
  - Catheterisation cardiac [None]
  - Arthralgia [None]
  - Diarrhoea [Recovering/Resolving]
  - Dyspepsia [Recovering/Resolving]
  - Headache [Recovered/Resolved]
  - Nausea [Recovering/Resolving]
  - Dyspnoea exertional [Not Recovered/Not Resolved]
  - Pneumonia [None]
  - Blood pressure systolic increased [Unknown]
  - Nausea [Unknown]
  - Drug ineffective [None]
  - Pulmonary thrombosis [None]
  - Surgery [None]
  - Abdominal discomfort [Unknown]
  - Blood disorder [None]

NARRATIVE: CASE EVENT DATE: 20160106
